FAERS Safety Report 14804495 (Version 1)
Quarter: 2018Q2

REPORT INFORMATION
  Report Type: Spontaneous
  Country: US (occurrence: US)
  Receive Date: 20180425
  Receipt Date: 20180425
  Transmission Date: 20180711
  Serious: Yes (Other)
  Sender: FDA-Public Use
  Company Number: US-PERRIGO-18US004247

PATIENT
  Age: 40 Year
  Sex: Female

DRUGS (2)
  1. MESALAMINE. [Suspect]
     Active Substance: MESALAMINE
     Indication: CROHN^S DISEASE
     Dosage: UNKNOWN,UNKNOWN
     Route: 048
  2. MESALAZINE [Suspect]
     Active Substance: MESALAMINE
     Indication: CROHN^S DISEASE
     Dosage: UNKNOWN, UNKNOWN
     Route: 054

REACTIONS (2)
  - Myocarditis [Recovered/Resolved]
  - Acute febrile neutrophilic dermatosis [Recovered/Resolved]
